FAERS Safety Report 10457287 (Version 5)
Quarter: 2014Q4

REPORT INFORMATION
  Report Type: Report from Study
  Country: CH (occurrence: CH)
  Receive Date: 20140916
  Receipt Date: 20141110
  Transmission Date: 20150528
  Serious: Yes (Death, Hospitalization, Other)
  Sender: FDA-Public Use
  Company Number: CH-TEVA-508588ISR

PATIENT
  Age: 53 Year
  Sex: Female

DRUGS (7)
  1. CONCOR 5MG [Concomitant]
     Indication: STATUS EPILEPTICUS
     Route: 065
     Dates: end: 201403
  2. DORMICUM [Concomitant]
     Active Substance: MIDAZOLAM\MIDAZOLAM HYDROCHLORIDE
     Indication: GENERALISED TONIC-CLONIC SEIZURE
     Dosage: 3 MILLIGRAM DAILY;
     Route: 065
     Dates: start: 20140304, end: 20140304
  3. RIVOTRIL [Concomitant]
     Active Substance: CLONAZEPAM
     Indication: STATUS EPILEPTICUS
     Route: 065
     Dates: start: 201403, end: 201403
  4. ORFIRIL [Concomitant]
     Active Substance: VALPROIC ACID
     Indication: STATUS EPILEPTICUS
     Route: 065
     Dates: start: 201403, end: 201403
  5. COPAXONE [Suspect]
     Active Substance: GLATIRAMER ACETATE
     Indication: MULTIPLE SCLEROSIS
     Dosage: 1 INJECTION IN THE MORNING
     Route: 065
     Dates: start: 20130313, end: 20140312
  6. AUGMENTIN [Concomitant]
     Active Substance: AMOXICILLIN\CLAVULANATE POTASSIUM
     Indication: PNEUMONIA
     Dosage: 3.6 GRAM DAILY;
     Route: 042
     Dates: start: 201403, end: 201403
  7. KEPPRA [Concomitant]
     Active Substance: LEVETIRACETAM
     Indication: STATUS EPILEPTICUS
     Route: 065
     Dates: start: 201403, end: 201403

REACTIONS (8)
  - Status epilepticus [Fatal]
  - Cardiomyopathy [Fatal]
  - Circulatory collapse [Fatal]
  - Cardiac failure [Unknown]
  - Sepsis [Fatal]
  - Pneumonia aspiration [Fatal]
  - Ventricular tachycardia [Unknown]
  - Coma [Unknown]

NARRATIVE: CASE EVENT DATE: 2014
